FAERS Safety Report 5455897-3 (Version None)
Quarter: 2007Q3

REPORT INFORMATION
  Report Type: 
  Country: None (occurrence: None)
  Receive Date: 20070914
  Receipt Date: 20070831
  Transmission Date: 20080115
  Serious: Yes (Hospitalization)
  Sender: FDA-Public Use
  Company Number: 237444K07USA

PATIENT

DRUGS (4)
  1. REBIF [Suspect]
     Indication: MULTIPLE SCLEROSIS
     Dosage: 44 MCG, 3 IN 1 WEEKS, SUBCUTANEOUS
     Route: 058
     Dates: start: 20021111
  2. LEXAPRO [Concomitant]
  3. DIOVAN [Concomitant]
  4. BACLOFEN [Concomitant]

REACTIONS (2)
  - THROMBOSIS [None]
  - URINARY TRACT INFECTION [None]
